FAERS Safety Report 15462303 (Version 1)
Quarter: 2018Q4

REPORT INFORMATION
  Report Type: Spontaneous
  Country: IR (occurrence: IR)
  Receive Date: 20181004
  Receipt Date: 20181004
  Transmission Date: 20190204
  Serious: Yes (Other)
  Sender: FDA-Public Use
  Company Number: IR-STRIDES ARCOLAB LIMITED-2017SP015301

PATIENT
  Age: 43 Year
  Sex: Female

DRUGS (1)
  1. METRONIDAZOLE. [Suspect]
     Active Substance: METRONIDAZOLE
     Indication: HELICOBACTER INFECTION
     Dosage: 28G, UNK
     Route: 065

REACTIONS (11)
  - Toxic encephalopathy [Recovered/Resolved]
  - Hemiparesis [Recovered/Resolved]
  - Lethargy [Recovered/Resolved]
  - Ataxia [Recovered/Resolved]
  - Apathy [Recovered/Resolved]
  - Dysarthria [Recovered/Resolved]
  - Nystagmus [Recovered/Resolved]
  - Neurotoxicity [Recovered/Resolved]
  - Patient uncooperative [Recovered/Resolved]
  - Deafness bilateral [Recovered/Resolved]
  - Vertigo [Recovered/Resolved]
